FAERS Safety Report 6026708-2 (Version None)
Quarter: 2008Q4

REPORT INFORMATION
  Report Type: 
  Country: None (occurrence: None)
  Receive Date: 20081222
  Receipt Date: 20080911
  Transmission Date: 20090506
  Serious: No
  Sender: FDA-Public Use
  Company Number: US-WYE-H06121008

PATIENT
  Age: 52 Year
  Sex: Female
  Weight: 56.75 kg

DRUGS (8)
  1. PRISTIQ [Suspect]
     Indication: DEPRESSION
     Dosage: 50 MG 1X PER 36 HR, ORAL, 50 MG 1X PER 1 DAY
     Route: 048
     Dates: start: 20080801, end: 20080801
  2. PRISTIQ [Suspect]
     Indication: HOT FLUSH
     Dosage: 50 MG 1X PER 36 HR, ORAL, 50 MG 1X PER 1 DAY
     Route: 048
     Dates: start: 20080801, end: 20080801
  3. PRISTIQ [Suspect]
     Indication: DEPRESSION
     Dosage: 50 MG 1X PER 36 HR, ORAL, 50 MG 1X PER 1 DAY
     Route: 048
     Dates: start: 20080801
  4. PRISTIQ [Suspect]
     Indication: HOT FLUSH
     Dosage: 50 MG 1X PER 36 HR, ORAL, 50 MG 1X PER 1 DAY
     Route: 048
     Dates: start: 20080801
  5. ARIMIDEX [Concomitant]
  6. ACIPHEX [Concomitant]
  7. NIFEREX (POLYSACCHARIDE-IRON COMPLEX) [Concomitant]
  8. VITAMIN D [Concomitant]

REACTIONS (3)
  - ENERGY INCREASED [None]
  - INSOMNIA [None]
  - PSYCHOMOTOR HYPERACTIVITY [None]
